FAERS Safety Report 11087584 (Version 1)
Quarter: 2015Q2

REPORT INFORMATION
  Report Type: Spontaneous
  Country: US (occurrence: None)
  Receive Date: 20150501
  Receipt Date: 20150501
  Transmission Date: 20150821
  Serious: Yes (Life-Threatening, Hospitalization)
  Sender: FDA-Public Use
  Company Number: None

PATIENT
  Age: 32 Year
  Sex: Male
  Weight: 82.3 kg

DRUGS (1)
  1. CEPHALEXIN. [Suspect]
     Active Substance: CEPHALEXIN
     Indication: CELLULITIS
     Route: 048
     Dates: start: 20150212, end: 20150212

REACTIONS (4)
  - Urticaria [None]
  - Dyspnoea [None]
  - Rash [None]
  - Oesophageal stenosis [None]

NARRATIVE: CASE EVENT DATE: 20150212
